FAERS Safety Report 9471083 (Version 1)
Quarter: 2013Q3

REPORT INFORMATION
  Report Type: Spontaneous
  Country: US (occurrence: None)
  Receive Date: 20130816
  Receipt Date: 20130816
  Transmission Date: 20140515
  Serious: Yes (Disabling)
  Sender: FDA-Public Use
  Company Number: 1844514

PATIENT
  Age: 40 Year
  Sex: Male

DRUGS (1)
  1. LIDOCAINE HCL [Suspect]
     Indication: NASAL SEPTAL OPERATION
     Route: 013

REACTIONS (5)
  - Retinal artery occlusion [None]
  - Blindness [None]
  - Facial bones fracture [None]
  - Iatrogenic injury [None]
  - Incorrect route of drug administration [None]
